FAERS Safety Report 20022434 (Version 2)
Quarter: 2021Q4

REPORT INFORMATION
  Report Type: Other
  Country: GB (occurrence: GB)
  Receive Date: 20211102
  Receipt Date: 20211111
  Transmission Date: 20220303
  Serious: Yes (Other)
  Sender: FDA-Public Use
  Company Number: GB-CELLTRION INC.-2021GB014684

PATIENT

DRUGS (7)
  1. INFLIXIMAB [Suspect]
     Active Substance: INFLIXIMAB
     Indication: Product used for unknown indication
     Dosage: 250 MG
     Route: 042
     Dates: start: 20171219
  2. INFLIXIMAB [Suspect]
     Active Substance: INFLIXIMAB
     Dosage: 250 MG
     Route: 042
     Dates: start: 20171219
  3. SODIUM CHLORIDE [Suspect]
     Active Substance: SODIUM CHLORIDE
     Indication: Medication dilution
     Dosage: UNK (DOSE FORM: 230)
     Route: 042
     Dates: start: 20171219
  4. SODIUM CHLORIDE [Suspect]
     Active Substance: SODIUM CHLORIDE
     Dosage: 250 ML
     Route: 042
     Dates: start: 20171219
  5. SODIUM CHLORIDE [Suspect]
     Active Substance: SODIUM CHLORIDE
     Dosage: 5 ML, POSI FLUSH
  6. WATER [Suspect]
     Active Substance: WATER
     Indication: Medication dilution
     Dosage: UNK (DOSE FORM: 236)
     Route: 042
     Dates: start: 20171219
  7. WATER [Suspect]
     Active Substance: WATER
     Dosage: UNK (DOSE FORM: 236)
     Route: 042
     Dates: start: 20171219

REACTIONS (3)
  - Diarrhoea [Unknown]
  - Abdominal pain [Unknown]
  - Abdominal distension [Unknown]
